FAERS Safety Report 20880036 (Version 1)
Quarter: 2022Q2

REPORT INFORMATION
  Report Type: Spontaneous
  Country: NO (occurrence: NO)
  Receive Date: 20220526
  Receipt Date: 20220526
  Transmission Date: 20220721
  Serious: Yes (Other)
  Sender: FDA-Public Use
  Company Number: NO-NOVARTISPH-NVSC2022NO121011

PATIENT
  Age: 62 Year
  Sex: Female

DRUGS (3)
  1. TEGRETOL XR [Suspect]
     Active Substance: CARBAMAZEPINE
     Indication: Epilepsy
     Dosage: UNK
     Route: 065
     Dates: start: 19800801
  2. TEGRETOL XR [Suspect]
     Active Substance: CARBAMAZEPINE
     Dosage: 200 MG, BID
     Route: 065
     Dates: start: 2016
  3. TEGRETOL XR [Suspect]
     Active Substance: CARBAMAZEPINE
     Dosage: 400 MG, BID (BEFORE 2016)
     Route: 065
     Dates: end: 20210801

REACTIONS (16)
  - Deep vein thrombosis [Unknown]
  - Peripheral swelling [Unknown]
  - Wheezing [Unknown]
  - Mucosal dryness [Unknown]
  - Malaise [Unknown]
  - General physical health deterioration [Unknown]
  - Blood cholesterol increased [Unknown]
  - Hypertension [Unknown]
  - Dry mouth [Unknown]
  - Lymphadenopathy [Unknown]
  - Pain [Unknown]
  - Myalgia [Unknown]
  - Arthralgia [Unknown]
  - Fatigue [Unknown]
  - Nausea [Unknown]
  - Fibromyalgia [Unknown]

NARRATIVE: CASE EVENT DATE: 20190901
